FAERS Safety Report 5102001-7 (Version None)
Quarter: 2006Q3

REPORT INFORMATION
  Report Type: 
  Country: None (occurrence: None)
  Receive Date: 20060907
  Receipt Date: 20060828
  Transmission Date: 20061208
  Serious: Yes (Hospitalization)
  Sender: FDA-Public Use
  Company Number: 2006102591

PATIENT
  Age: 56 Year
  Sex: Female
  Weight: 69.1 kg

DRUGS (5)
  1. SUTENT [Suspect]
     Indication: NON-SMALL CELL LUNG CANCER
     Dosage: 50 MG (50 MG,1 IN 1 D), ORAL
     Route: 048
     Dates: start: 20050908
  2. PROTONIX [Concomitant]
  3. LISINOPRIL [Concomitant]
  4. PAROXETINE HCL [Concomitant]
  5. HYDROCHLOROTHIAZIDE [Concomitant]

REACTIONS (1)
  - COLITIS [None]
